FAERS Safety Report 14382214 (Version 1)
Quarter: 2018Q1

REPORT INFORMATION
  Report Type: Spontaneous
  Country: US (occurrence: US)
  Receive Date: 20180112
  Receipt Date: 20180112
  Transmission Date: 20180509
  Serious: Yes (Hospitalization)
  Sender: FDA-Public Use
  Company Number: US-IMPAX LABORATORIES, INC-2017-IPXL-03338

PATIENT
  Age: 85 Year
  Sex: Female

DRUGS (1)
  1. RYTARY [Suspect]
     Active Substance: CARBIDOPA\LEVODOPA
     Indication: PARKINSON^S DISEASE
     Dosage: 23.75/95MG, WEEK 1, 2 CAPS AM; WEEK 2, 2 CAPS AM AND 2 CAPS PM
     Route: 065

REACTIONS (2)
  - Drug ineffective [Unknown]
  - Hospitalisation [Unknown]
